FAERS Safety Report 15202673 (Version 4)
Quarter: 2019Q1

REPORT INFORMATION
  Report Type: Spontaneous
  Country: RO (occurrence: RO)
  Receive Date: 20180726
  Receipt Date: 20190120
  Transmission Date: 20190417
  Serious: Yes (Hospitalization, Other)
  Sender: FDA-Public Use
  Company Number: RO-AUROBINDO-AUR-APL-2018-036644

PATIENT
  Age: 35 Year
  Sex: Male

DRUGS (35)
  1. AMISULPRIDE TABLETS [Suspect]
     Active Substance: AMISULPRIDE
     Dosage: 800 MILLIGRAM, ONCE A DAY
     Route: 065
     Dates: start: 2018
  2. AMISULPRIDE TABLETS [Suspect]
     Active Substance: AMISULPRIDE
     Dosage: 400 MG, QD
     Route: 065
  3. AMISULPRIDE TABLETS [Suspect]
     Active Substance: AMISULPRIDE
     Dosage: 200 MILLIGRAM, ONCE A DAY
     Route: 065
  4. OLANZAPINE. [Suspect]
     Active Substance: OLANZAPINE
     Indication: NARCISSISTIC PERSONALITY DISORDER
     Dosage: 15 MG, QD
     Route: 048
     Dates: start: 20150526, end: 20180614
  5. CLOZAPINE. [Suspect]
     Active Substance: CLOZAPINE
     Indication: PSYCHOTIC DISORDER
     Dosage: 75 MILLIGRAM, ONCE A DAY
     Route: 048
  6. CLOZAPINE. [Suspect]
     Active Substance: CLOZAPINE
     Dosage: 250 MILLIGRAM, ONCE A DAY
     Route: 065
  7. ARIPIPRAZOLE. [Suspect]
     Active Substance: ARIPIPRAZOLE
     Indication: NARCISSISTIC PERSONALITY DISORDER
  8. RISPERIDONE. [Suspect]
     Active Substance: RISPERIDONE
     Dosage: 6 MILLIGRAM, ONCE A DAY
     Route: 065
     Dates: start: 2015
  9. OLANZAPINE. [Suspect]
     Active Substance: OLANZAPINE
     Dosage: 15 MG, QD, DOSE INCREASED FOM 5MG/DAY TO 15 MG/DAY
     Route: 065
  10. CLOZAPINE. [Suspect]
     Active Substance: CLOZAPINE
     Dosage: 500 MG, QD, INCREASED 100 MG/WEEK, UP TO 500 MG/DAY
     Route: 048
  11. RISPERIDONE. [Suspect]
     Active Substance: RISPERIDONE
     Dosage: 6 MILLILITER, ONCE A DAY
     Route: 065
     Dates: start: 2015
  12. PALIPERIDONE. [Suspect]
     Active Substance: PALIPERIDONE
     Dosage: 9 MILLIGRAM
     Route: 016
     Dates: start: 201510
  13. LAMOTRIGINE. [Concomitant]
     Active Substance: LAMOTRIGINE
     Dosage: 25 MILLIGRAM, QD, INCREASE IN DOSE UNTIL WEEK 6 T0 200MG/DAY
     Route: 065
  14. OLANZAPINE. [Suspect]
     Active Substance: OLANZAPINE
     Dosage: 20 MG, QD
     Route: 065
     Dates: start: 2018
  15. CLOZAPINE. [Suspect]
     Active Substance: CLOZAPINE
     Indication: NARCISSISTIC PERSONALITY DISORDER
     Dosage: 500 MG, DAILY, DRUG DOSE DECREASED TO 100 MG/DAY
     Route: 048
  16. ARIPIPRAZOLE. [Suspect]
     Active Substance: ARIPIPRAZOLE
     Indication: SCHIZOPHRENIA
     Dosage: 400 MILLIGRAM, QMO
     Route: 065
     Dates: start: 20150526, end: 20180614
  17. CLOZAPINE. [Suspect]
     Active Substance: CLOZAPINE
     Dosage: 500 MG, DAILY, INCREASED 100 MG/WEEK, UP TO 500 MG/DAY
     Route: 065
  18. SODIUM VALPROATE [Concomitant]
     Active Substance: VALPROATE SODIUM
     Indication: PRODUCT USED FOR UNKNOWN INDICATION
     Dosage: 300 MILLIGRAM, ONCE A DAY
     Route: 065
  19. AMISULPRIDE TABLETS [Suspect]
     Active Substance: AMISULPRIDE
     Indication: PRODUCT USED FOR UNKNOWN INDICATION
     Dosage: 400 MILLIGRAM, ONCE A DAY
     Route: 065
     Dates: start: 2018
  20. CLOZAPINE. [Suspect]
     Active Substance: CLOZAPINE
     Indication: SCHIZOPHRENIA
     Dosage: 100 MILLIGRAM, ONCE A DAY
     Route: 048
  21. RISPERIDONE. [Suspect]
     Active Substance: RISPERIDONE
     Indication: PRODUCT USED FOR UNKNOWN INDICATION
     Dosage: 6 MILLIGRAM PER LITRE, ONCE A DAY
     Route: 048
     Dates: start: 20150615, end: 20150807
  22. QUETIAPINE. [Suspect]
     Active Substance: QUETIAPINE
     Indication: SCHIZOPHRENIA
     Dosage: 600 MILLIGRAM, ONCE A DAY
     Route: 065
     Dates: start: 20150416, end: 20150525
  23. QUETIAPINE. [Suspect]
     Active Substance: QUETIAPINE
     Indication: NARCISSISTIC PERSONALITY DISORDER
  24. PALIPERIDONE. [Suspect]
     Active Substance: PALIPERIDONE
     Dosage: 6 MILLIGRAM
     Route: 065
     Dates: start: 20151002
  25. LAMOTRIGINE. [Concomitant]
     Active Substance: LAMOTRIGINE
     Indication: PRODUCT USED FOR UNKNOWN INDICATION
     Dosage: 200 MG, QD
     Route: 065
  26. TRIHEXIFENIDILO                    /00002601/ [Concomitant]
     Indication: PRODUCT USED FOR UNKNOWN INDICATION
     Dosage: 6 MG, QD
     Route: 065
  27. ZIPRASIDONE. [Concomitant]
     Active Substance: ZIPRASIDONE
     Indication: PRODUCT USED FOR UNKNOWN INDICATION
     Dosage: 80 MG, QD
     Route: 065
     Dates: start: 20150615, end: 20150807
  28. AMISULPRIDE TABLETS [Suspect]
     Active Substance: AMISULPRIDE
     Dosage: 200 MILLIGRAM, ONCE A DAY
     Route: 065
     Dates: start: 2018
  29. CLOZAPINE. [Suspect]
     Active Substance: CLOZAPINE
     Indication: NEUROLEPTIC MALIGNANT SYNDROME
     Dosage: , QD,SLOW INCREASE IN DOSE BY 25 MG/WEEK (IN THE FIRST 4 WEEKS)25 MILLIGRAM, ONCE A DAY
     Route: 048
     Dates: start: 20150615
  30. QUETIAPINE. [Suspect]
     Active Substance: QUETIAPINE
     Indication: NARCISSISTIC PERSONALITY DISORDER
  31. PALIPERIDONE. [Suspect]
     Active Substance: PALIPERIDONE
     Indication: PRODUCT USED FOR UNKNOWN INDICATION
     Dosage: 12 MG, QD, SWITHCED TO CLOZAPINE
     Route: 065
     Dates: start: 20150615, end: 20150807
  32. OLANZAPINE. [Suspect]
     Active Substance: OLANZAPINE
     Indication: SCHIZOPHRENIA
     Dosage: 5 MG, QD, DOSE DECREASED FROM 15MG/DAY
     Route: 065
     Dates: start: 2006
  33. PALIPERIDONE. [Suspect]
     Active Substance: PALIPERIDONE
     Dosage: 12.5 MG, QD
     Route: 065
  34. PALIPERIDONE. [Suspect]
     Active Substance: PALIPERIDONE
     Dosage: 9 MILLIGRAM
     Route: 065
  35. SODIUM VALPROATE [Concomitant]
     Active Substance: VALPROATE SODIUM
     Dosage: 1500 MILLIGRAM
     Route: 065

REACTIONS (13)
  - Acute psychosis [Unknown]
  - Skin abrasion [Unknown]
  - Delusional perception [Recovering/Resolving]
  - Psychotic disorder [Unknown]
  - Transaminases increased [Unknown]
  - Abnormal behaviour [Unknown]
  - Therapy non-responder [Unknown]
  - Computerised tomogram abnormal [Unknown]
  - Suspiciousness [Recovering/Resolving]
  - Refusal of treatment by patient [Unknown]
  - Extrapyramidal disorder [Recovering/Resolving]
  - Neuroleptic malignant syndrome [Unknown]
  - Gynaecomastia [Unknown]

NARRATIVE: CASE EVENT DATE: 201507
